FAERS Safety Report 22203987 (Version 1)
Quarter: 2023Q2

REPORT INFORMATION
  Report Type: Spontaneous
  Country: US (occurrence: US)
  Receive Date: 20230412
  Receipt Date: 20230412
  Transmission Date: 20230721
  Serious: Yes (Other)
  Sender: FDA-Public Use
  Company Number: US-TEVA-2023-US-2875048

PATIENT

DRUGS (1)
  1. PROAIR HFA [Suspect]
     Active Substance: ALBUTEROL SULFATE
     Indication: Dyspnoea
     Route: 055
     Dates: start: 202205, end: 20221223

REACTIONS (10)
  - Myocardial infarction [Unknown]
  - Dizziness [Unknown]
  - Tremor [Unknown]
  - Blood pressure increased [Unknown]
  - Dehydration [Unknown]
  - Drug hypersensitivity [Unknown]
  - Pruritus [Recovering/Resolving]
  - Rash erythematous [Recovering/Resolving]
  - Palpitations [Recovering/Resolving]
  - Drug ineffective [Unknown]

NARRATIVE: CASE EVENT DATE: 20220101
